FAERS Safety Report 6741749-5 (Version None)
Quarter: 2010Q2

REPORT INFORMATION
  Report Type: 
  Country: None (occurrence: None)
  Receive Date: 20100526
  Receipt Date: 20100517
  Transmission Date: 20101027
  Serious: Yes (Hospitalization, Other)
  Sender: FDA-Public Use
  Company Number: US-PURDUE-USA-2008-0033360

PATIENT
  Sex: Female

DRUGS (14)
  1. OXYCONTIN [Suspect]
     Indication: PAIN
     Dosage: 40 MG, DAILY
     Route: 048
     Dates: start: 20000101
  2. CIPROFLOXACIN [Concomitant]
  3. BACLOFEN [Concomitant]
  4. FOSAMAX [Concomitant]
  5. HYDROCHLOROTHIAZIDE [Concomitant]
  6. PREMPHASE 14/14 [Concomitant]
  7. DITROPAN [Concomitant]
  8. METOCLOPRAMIDE [Concomitant]
  9. NEURONTIN [Concomitant]
     Dosage: 600 MG, SEE TEXT
  10. FOLIC ACID [Concomitant]
  11. VALIUM [Concomitant]
  12. MACROBID [Concomitant]
  13. COLACE CAPSULES [Concomitant]
  14. MULTI-VITAMINS [Concomitant]

REACTIONS (12)
  - ANHEDONIA [None]
  - ANXIETY [None]
  - DELUSIONAL DISORDER, UNSPECIFIED TYPE [None]
  - DEPRESSION [None]
  - DRUG ABUSE [None]
  - DRUG DEPENDENCE [None]
  - DRUG INEFFECTIVE [None]
  - DRUG WITHDRAWAL SYNDROME [None]
  - OBSESSIVE-COMPULSIVE DISORDER [None]
  - PAIN [None]
  - PARANOIA [None]
  - SUICIDAL IDEATION [None]
